FAERS Safety Report 6792707-6 (Version None)
Quarter: 2010Q2

REPORT INFORMATION
  Report Type: 
  Country: None (occurrence: None)
  Receive Date: 20100624
  Receipt Date: 20081014
  Transmission Date: 20101027
  Serious: No
  Sender: FDA-Public Use
  Company Number: US-PFIZER INC-2008074266

PATIENT
  Sex: Male
  Weight: 115.21 kg

DRUGS (3)
  1. SUTENT [Suspect]
     Indication: RENAL CELL CARCINOMA
     Route: 048
     Dates: start: 20070401
  2. SUTENT [Interacting]
     Indication: METASTASES TO LUNG
  3. ZEMPLAR [Interacting]
     Indication: BLOOD PARATHYROID HORMONE INCREASED
     Route: 048
     Dates: start: 20080501, end: 20080609

REACTIONS (4)
  - BLOOD PARATHYROID HORMONE INCREASED [None]
  - DRUG INTERACTION [None]
  - RASH [None]
  - SKIN LESION [None]
